FAERS Safety Report 8333177-6 (Version None)
Quarter: 2012Q1

REPORT INFORMATION
  Report Type: 
  Country: None (occurrence: None)
  Receive Date: 20120327
  Receipt Date: 20110301
  Transmission Date: 20120608
  Serious: Yes (Disabling, Other)
  Sender: FDA-Public Use
  Company Number: PHHY2011US15302

PATIENT
  Age: 78 Year
  Sex: Female
  Weight: 56.7 kg

DRUGS (8)
  1. WARFARIN SODIUM [Concomitant]
  2. SYNTHROID [Concomitant]
  3. CALCIUM CITRATE (CALCIUM CITRATE) [Concomitant]
  4. METOPROLOL TARTRATE [Concomitant]
  5. VITAMIN D [Concomitant]
  6. GLEEVEC [Suspect]
     Indication: CHRONIC MYELOID LEUKAEMIA
     Dosage: 400 MG, QD, ORAL
     Route: 048
     Dates: start: 20110209, end: 20110218
  7. MAGNESIUM OXIDE (MAGNESIUM OXIDE) [Concomitant]
  8. DIGOXIN [Concomitant]

REACTIONS (5)
  - RASH PRURITIC [None]
  - RASH ERYTHEMATOUS [None]
  - RASH GENERALISED [None]
  - OEDEMA [None]
  - LIVER FUNCTION TEST ABNORMAL [None]
